FAERS Safety Report 11173296 (Version 1)
Quarter: 2015Q2

REPORT INFORMATION
  Report Type: Spontaneous
  Country: US (occurrence: US)
  Receive Date: 20150608
  Receipt Date: 20150608
  Transmission Date: 20150821
  Serious: Yes (Hospitalization, Disabling)
  Sender: FDA-Public Use
  Company Number: US-ENDO PHARMACEUTICALS INC.-201408078

PATIENT
  Age: 60 Year
  Sex: Male
  Weight: 81.72 kg

DRUGS (4)
  1. TESTIM [Suspect]
     Active Substance: TESTOSTERONE
     Indication: HYPOGONADISM
     Route: 062
     Dates: start: 201203, end: 201204
  2. ANDROGEL [Suspect]
     Active Substance: TESTOSTERONE
     Dosage: THREE PUMPS
     Route: 062
     Dates: start: 201301
  3. ANDROGEL [Suspect]
     Active Substance: TESTOSTERONE
     Indication: HYPOGONADISM
     Dosage: ONE PUMP
     Route: 065
     Dates: start: 201204, end: 201302
  4. ANDROGEL [Suspect]
     Active Substance: TESTOSTERONE
     Dosage: TWO PUMPS
     Route: 062
     Dates: start: 201209

REACTIONS (2)
  - Cardiogenic shock [Not Recovered/Not Resolved]
  - Cardiac arrest [Not Recovered/Not Resolved]

NARRATIVE: CASE EVENT DATE: 20130211
